FAERS Safety Report 5909043-X (Version None)
Quarter: 2008Q3

REPORT INFORMATION
  Report Type: 
  Country: None (occurrence: None)
  Receive Date: 20080930
  Receipt Date: 20080924
  Transmission Date: 20090109
  Serious: Yes (Hospitalization, Other)
  Sender: FDA-Public Use
  Company Number: 2008SP016948

PATIENT
  Age: 44 Year
  Sex: Male

DRUGS (2)
  1. PEG-INTRON [Suspect]
     Indication: HEPATITIS C
     Dates: start: 20080627
  2. REBETOL [Suspect]
     Indication: HEPATITIS C
     Dosage: PO
     Route: 048
     Dates: start: 20080627

REACTIONS (21)
  - ANAEMIA [None]
  - DEHYDRATION [None]
  - DYSARTHRIA [None]
  - DYSGEUSIA [None]
  - FEELING ABNORMAL [None]
  - GASTRIC MUCOSAL LESION [None]
  - HAEMATEMESIS [None]
  - HAEMATOCHEZIA [None]
  - HEADACHE [None]
  - HEPATIC PAIN [None]
  - IMPAIRED WORK ABILITY [None]
  - LETHARGY [None]
  - LIVER DISORDER [None]
  - PAIN IN EXTREMITY [None]
  - PHARYNGITIS STREPTOCOCCAL [None]
  - PULMONARY OEDEMA [None]
  - PYREXIA [None]
  - SKIN EXFOLIATION [None]
  - SWOLLEN TONGUE [None]
  - VARICES OESOPHAGEAL [None]
  - WHITE BLOOD CELL COUNT DECREASED [None]
